FAERS Safety Report 5536421-3 (Version None)
Quarter: 2007Q4

REPORT INFORMATION
  Report Type: 
  Country: None (occurrence: None)
  Receive Date: 20071204
  Receipt Date: 20071123
  Transmission Date: 20080405
  Serious: Yes (Hospitalization)
  Sender: FDA-Public Use
  Company Number: 2007-03945

PATIENT
  Age: 54 Year
  Sex: Male
  Weight: 62 kg

DRUGS (1)
  1. VELCADE [Suspect]
     Indication: T-CELL LYMPHOMA
     Dosage: 1.50 MG/M2, INTRAVENOUS
     Route: 042
     Dates: start: 20071019, end: 20071119

REACTIONS (3)
  - ABDOMINAL DISTENSION [None]
  - DECREASED APPETITE [None]
  - HERPES VIRUS INFECTION [None]
